FAERS Safety Report 13743447 (Version 2)
Quarter: 2018Q1

REPORT INFORMATION
  Report Type: Spontaneous
  Country: GB (occurrence: GB)
  Receive Date: 20170711
  Receipt Date: 20180227
  Transmission Date: 20180508
  Serious: Yes (Hospitalization, Other)
  Sender: FDA-Public Use
  Company Number: GB-ALLERGAN-1728321US

PATIENT
  Age: 29 Year
  Sex: Female

DRUGS (1)
  1. BOTOX [Suspect]
     Active Substance: ONABOTULINUMTOXINA
     Indication: MIGRAINE
     Dosage: 155 UNITS, SINGLE
     Route: 030
     Dates: start: 20170609, end: 20170609

REACTIONS (22)
  - Opisthotonus [Unknown]
  - Diarrhoea [Recovering/Resolving]
  - Myalgia [Recovering/Resolving]
  - Paralysis [Recovering/Resolving]
  - Seizure [Recovering/Resolving]
  - Mental impairment [Unknown]
  - Decreased appetite [Recovering/Resolving]
  - Anxiety [Recovering/Resolving]
  - Burning sensation [Recovering/Resolving]
  - Pruritus [Unknown]
  - Renal pain [Recovering/Resolving]
  - Headache [Unknown]
  - Temperature regulation disorder [Recovering/Resolving]
  - Muscular weakness [Recovering/Resolving]
  - Back pain [Unknown]
  - Tremor [Unknown]
  - Product administered at inappropriate site [Unknown]
  - Renal failure [Recovering/Resolving]
  - Pollakiuria [Recovering/Resolving]
  - Muscle spasms [Recovering/Resolving]
  - Dyspnoea [Unknown]
  - Hyperhidrosis [Unknown]

NARRATIVE: CASE EVENT DATE: 20170609
